FAERS Safety Report 9893456 (Version 1)
Quarter: 2014Q1

REPORT INFORMATION
  Report Type: Spontaneous
  Country: JP (occurrence: JP)
  Receive Date: 20140213
  Receipt Date: 20140213
  Transmission Date: 20141002
  Serious: Yes (Other)
  Sender: FDA-Public Use
  Company Number: JP-JNJFOC-20140205660

PATIENT
  Age: 55 Year
  Sex: Male

DRUGS (7)
  1. SIMPONI [Suspect]
     Indication: RHEUMATOID ARTHRITIS
     Route: 058
     Dates: start: 20140204
  2. ANPLAG [Concomitant]
     Route: 048
  3. LOXONIN [Concomitant]
     Route: 048
  4. VIAGRA [Concomitant]
     Route: 048
  5. PARIET [Concomitant]
     Route: 048
  6. MUCOSTA [Concomitant]
     Route: 048
  7. INSULIN [Concomitant]
     Dosage: 16 IU
     Route: 058

REACTIONS (3)
  - Malaise [Not Recovered/Not Resolved]
  - Blood pressure decreased [Not Recovered/Not Resolved]
  - Somnolence [Unknown]
